FAERS Safety Report 15944952 (Version 1)
Quarter: 2019Q1

REPORT INFORMATION
  Report Type: Spontaneous
  Country: FR (occurrence: FR)
  Receive Date: 20190211
  Receipt Date: 20190211
  Transmission Date: 20190417
  Serious: Yes (Other)
  Sender: FDA-Public Use
  Company Number: FR-BRISTOL-MYERS SQUIBB COMPANY-BMS-2019-013697

PATIENT
  Age: 37 Year
  Sex: Male

DRUGS (1)
  1. BARACLUDE [Suspect]
     Active Substance: ENTECAVIR
     Indication: CHRONIC HEPATITIS B
     Dosage: 1 DF =1T, DRUG INTERVAL DOSAGE UNIT NUMBER WAS REPORTED AS 1 DAYUNK
     Route: 048
     Dates: start: 201806, end: 20190117

REACTIONS (6)
  - Syncope [Recovered/Resolved]
  - Balance disorder [Not Recovered/Not Resolved]
  - Hot flush [Recovered/Resolved]
  - Headache [Recovered/Resolved]
  - Asthenia [Recovered/Resolved]
  - Diplopia [Recovered/Resolved]

NARRATIVE: CASE EVENT DATE: 201809
